FAERS Safety Report 12782685 (Version 1)
Quarter: 2016Q3

REPORT INFORMATION
  Report Type: Report from Study
  Country: US (occurrence: US)
  Receive Date: 20160927
  Receipt Date: 20160927
  Transmission Date: 20161109
  Serious: Yes (Other)
  Sender: FDA-Public Use
  Company Number: US-AMGEN-USASP2016128487

PATIENT

DRUGS (1)
  1. PROLIA [Suspect]
     Active Substance: DENOSUMAB
     Indication: PRODUCT USED FOR UNKNOWN INDICATION
     Dosage: UNK
     Route: 065

REACTIONS (14)
  - Fall [Unknown]
  - Headache [Unknown]
  - Laboratory test abnormal [Unknown]
  - Dizziness [Unknown]
  - Clavicle fracture [Unknown]
  - Pruritus [Unknown]
  - Pain in extremity [Unknown]
  - Blood calcium increased [Unknown]
  - Blood pressure increased [Unknown]
  - Hyperhidrosis [Unknown]
  - Back pain [Unknown]
  - Head discomfort [Unknown]
  - Abdominal pain [Unknown]
  - Blood cholesterol increased [Unknown]
